FAERS Safety Report 9967611 (Version 1)
Quarter: 2014Q1

REPORT INFORMATION
  Report Type: Report from Study
  Country: US (occurrence: US)
  Receive Date: 20140305
  Receipt Date: 20140305
  Transmission Date: 20141002
  Serious: No
  Sender: FDA-Public Use
  Company Number: US-ABBVIE-13P-163-1138189-00

PATIENT
  Age: 56 Year
  Sex: Female

DRUGS (4)
  1. HUMIRA [Suspect]
     Indication: RHEUMATOID ARTHRITIS
     Dates: start: 20130719
  2. METFORMIN [Concomitant]
     Indication: DIABETES MELLITUS
  3. HYDROXYCHLOROQUINE [Concomitant]
     Indication: PAIN
  4. METHOTREXATE [Concomitant]
     Indication: ARTHRITIS
     Dosage: 2.5MG FOUR PILLS (10MG) EVERY SATURDAY, FOUR PILLS (10MG) EVERY SUNDAY

REACTIONS (2)
  - Fatigue [Recovering/Resolving]
  - Somnolence [Recovering/Resolving]
